FAERS Safety Report 6344260-9 (Version None)
Quarter: 2009Q3

REPORT INFORMATION
  Report Type: 
  Country: None (occurrence: None)
  Receive Date: 20090904
  Receipt Date: 20090904
  Transmission Date: 20100115
  Serious: No
  Sender: FDA-Public Use
  Company Number: None

PATIENT
  Sex: Female
  Weight: 78.0187 kg

DRUGS (2)
  1. METHYLPREDNISOLONE [Suspect]
     Indication: MULTIPLE SCLEROSIS RELAPSE
     Dosage: 1000MG DAILY IV DRIP
     Route: 041
     Dates: start: 20090123, end: 20090126
  2. METHYLPREDNISOLONE [Suspect]
     Indication: MULTIPLE SCLEROSIS RELAPSE
     Dosage: 1000MG DAILY IV DRIP
     Route: 041
     Dates: start: 20080515, end: 20090518

REACTIONS (2)
  - HEPATIC ENZYME INCREASED [None]
  - LIVER INJURY [None]
